FAERS Safety Report 4910152-2 (Version None)
Quarter: 2006Q1

REPORT INFORMATION
  Report Type: 
  Country: None (occurrence: None)
  Receive Date: 20060209
  Receipt Date: 20060119
  Transmission Date: 20060701
  Serious: Yes (Death, Hospitalization, Other)
  Sender: FDA-Public Use
  Company Number: US200601003360

PATIENT
  Age: 83 Year
  Sex: Male

DRUGS (1)
  1. HUMULIN 70/30 [Suspect]
     Indication: DIABETES MELLITUS
     Dosage: AS NEEDED,
     Dates: start: 19910101

REACTIONS (9)
  - AORTIC VALVE REPLACEMENT [None]
  - BLOOD GLUCOSE DECREASED [None]
  - CORONARY ARTERY SURGERY [None]
  - DIALYSIS [None]
  - GANGRENE [None]
  - LEG AMPUTATION [None]
  - OPEN WOUND [None]
  - PNEUMONIA [None]
  - RENAL IMPAIRMENT [None]
